FAERS Safety Report 7018423-3 (Version None)
Quarter: 2010Q3

REPORT INFORMATION
  Report Type: 
  Country: None (occurrence: None)
  Receive Date: 20100928
  Receipt Date: 20100916
  Transmission Date: 20110219
  Serious: Yes (Hospitalization, Other)
  Sender: FDA-Public Use
  Company Number: US-WYE-H17559210

PATIENT
  Sex: Female
  Weight: 61.74 kg

DRUGS (14)
  1. ZOSYN [Suspect]
     Indication: PRODUCT USED FOR UNKNOWN INDICATION
     Dosage: UNKNOWN
     Route: 065
  2. LORTAB [Concomitant]
     Indication: PAIN
     Dosage: 5/500 MG 3X/DAY
     Route: 048
  3. DURAGESIC-100 [Concomitant]
     Indication: PAIN
     Route: 062
  4. COREG [Concomitant]
     Indication: CARDIAC DISORDER
     Route: 048
  5. SPIRIVA [Concomitant]
     Indication: CHRONIC OBSTRUCTIVE PULMONARY DISEASE
     Dosage: UNKNOWN
     Route: 065
  6. VANCOMYCIN [Suspect]
     Indication: STAPHYLOCOCCAL INFECTION
     Dosage: UNKNOWN
     Route: 065
  7. PROZAC [Concomitant]
     Indication: DEPRESSION
     Route: 048
  8. KLONOPIN [Concomitant]
     Indication: DEPRESSION
     Route: 048
  9. SEROQUEL [Concomitant]
     Indication: CONVULSION
     Route: 048
  10. BACTRIM [Suspect]
     Indication: STAPHYLOCOCCAL INFECTION
     Dosage: UNKNOWN
     Route: 065
     Dates: start: 20090101, end: 20100101
  11. WARFARIN SODIUM [Concomitant]
     Indication: PROPHYLAXIS
     Route: 065
  12. WARFARIN SODIUM [Concomitant]
     Route: 065
  13. ZYVOX [Suspect]
     Indication: STAPHYLOCOCCAL INFECTION
     Dosage: UNKNOWN
     Route: 065
     Dates: start: 20100801, end: 20100101
  14. SYMBICORT [Concomitant]
     Indication: ASTHMA
     Dosage: UNKNOWN
     Route: 065

REACTIONS (7)
  - ABASIA [None]
  - ABSCESS [None]
  - BEDRIDDEN [None]
  - DIARRHOEA [None]
  - HYPOAESTHESIA [None]
  - RECTAL ULCER [None]
  - WEIGHT DECREASED [None]
